FAERS Safety Report 24820542 (Version 1)
Quarter: 2025Q1

REPORT INFORMATION
  Report Type: Spontaneous
  Country: US (occurrence: US)
  Receive Date: 20250108
  Receipt Date: 20250108
  Transmission Date: 20250408
  Serious: Yes (Other)
  Sender: PFIZER
  Company Number: US-PFIZER INC-202500001157

PATIENT
  Age: 57 Year
  Sex: Male

DRUGS (1)
  1. XELJANZ [Suspect]
     Active Substance: TOFACITINIB CITRATE
     Indication: Rheumatoid arthritis
     Dosage: 5 MG, 2X/DAY
     Route: 048
     Dates: start: 201412

REACTIONS (7)
  - Road traffic accident [Unknown]
  - Ulna fracture [Unknown]
  - Neck injury [Unknown]
  - Back injury [Unknown]
  - Joint injury [Unknown]
  - Spinal osteoarthritis [Unknown]
  - Joint space narrowing [Unknown]
